FAERS Safety Report 16614497 (Version 3)
Quarter: 2019Q3

REPORT INFORMATION
  Report Type: Spontaneous
  Country: US (occurrence: US)
  Receive Date: 20190723
  Receipt Date: 20190829
  Transmission Date: 20191004
  Serious: No
  Sender: FDA-Public Use
  Company Number: US-PFIZER INC-2019304030

PATIENT
  Age: 66 Year
  Sex: Female

DRUGS (1)
  1. PREMARIN [Suspect]
     Active Substance: ESTROGENS, CONJUGATED
     Dosage: UNK (INSERT 1/2 APPLICATORFUL VAGINALLY TWICE A WEEK), 2X/WEEK
     Route: 067
     Dates: start: 20190711

REACTIONS (3)
  - Off label use [Unknown]
  - Vulvovaginal dryness [Unknown]
  - Vaginal infection [Unknown]

NARRATIVE: CASE EVENT DATE: 20190711
